FAERS Safety Report 7389830-4 (Version None)
Quarter: 2011Q2

REPORT INFORMATION
  Report Type: 
  Country: None (occurrence: None)
  Receive Date: 20110401
  Receipt Date: 20110322
  Transmission Date: 20111010
  Serious: Yes (Hospitalization, Other)
  Sender: FDA-Public Use
  Company Number: CA-PURDUE-CAN-2011-0001796

PATIENT
  Age: 51 Year
  Sex: Female

DRUGS (2)
  1. OXYCONTIN [Suspect]
     Indication: PAIN
     Dosage: UNK
     Route: 048
     Dates: start: 20070101
  2. SUPEUDOL [Suspect]
     Indication: PAIN
     Route: 048

REACTIONS (10)
  - WEIGHT DECREASED [None]
  - DRUG INEFFECTIVE [None]
  - SUICIDAL IDEATION [None]
  - PAIN [None]
  - MEDICATION RESIDUE [None]
  - DIARRHOEA [None]
  - HYPOPHOSPHATAEMIA [None]
  - LETHARGY [None]
  - HYPOMAGNESAEMIA [None]
  - APATHY [None]
